FAERS Safety Report 8015728-4 (Version None)
Quarter: 2011Q4

REPORT INFORMATION
  Report Type: 
  Country: None (occurrence: None)
  Receive Date: 20111230
  Receipt Date: 20111226
  Transmission Date: 20120403
  Serious: Yes (Hospitalization, Other)
  Sender: FDA-Public Use
  Company Number: PHHY2011VE113106

PATIENT
  Sex: Female

DRUGS (2)
  1. CALCIUM ACETATE [Concomitant]
     Dosage: 1 DF, QD
  2. ZOLEDRONOC ACID [Suspect]
     Indication: OSTEOPOROSIS
     Dosage: 5 MG, YEARLY
     Route: 042
     Dates: start: 20110101

REACTIONS (3)
  - OSTEOPOROSIS [None]
  - BONE FISSURE [None]
  - ARTHRALGIA [None]
